FAERS Safety Report 19888943 (Version 13)
Quarter: 2023Q2

REPORT INFORMATION
  Report Type: Report from Study
  Country: PA (occurrence: PA)
  Receive Date: 20210928
  Receipt Date: 20230623
  Transmission Date: 20230721
  Serious: Yes (Other)
  Sender: FDA-Public Use
  Company Number: NVSC2021PA211418

PATIENT
  Age: 49 Year
  Sex: Female
  Weight: 67 kg

DRUGS (5)
  1. KISQALI [Suspect]
     Active Substance: RIBOCICLIB
     Indication: Breast cancer metastatic
     Dosage: 400 MG, QD
     Route: 048
     Dates: start: 20210801
  2. KISQALI [Suspect]
     Active Substance: RIBOCICLIB
     Dosage: 600 MG, QD
     Route: 048
     Dates: start: 202108
  3. KISQALI [Suspect]
     Active Substance: RIBOCICLIB
     Dosage: 2 DOSAGE FORM, QD
     Route: 065
  4. KISQALI [Suspect]
     Active Substance: RIBOCICLIB
     Dosage: 3 DOSAGE FORM, QD
     Route: 065
     Dates: start: 202111
  5. FULVESTRANT [Suspect]
     Active Substance: FULVESTRANT
     Indication: Product used for unknown indication
     Dosage: UNK
     Route: 065

REACTIONS (27)
  - Anxiety [Unknown]
  - Lower respiratory tract infection [Recovering/Resolving]
  - Tachycardia [Recovering/Resolving]
  - Breast cancer recurrent [Unknown]
  - Muscle strain [Unknown]
  - Choking [Unknown]
  - Metastases to bone [Unknown]
  - Eye swelling [Unknown]
  - Eye pruritus [Unknown]
  - Malaise [Unknown]
  - Chest pain [Unknown]
  - Arthralgia [Recovering/Resolving]
  - Hypoaesthesia [Recovered/Resolved]
  - Limb discomfort [Recovering/Resolving]
  - Abdominal discomfort [Recovering/Resolving]
  - Onychoclasis [Unknown]
  - Leukonychia [Recovering/Resolving]
  - Tumour marker abnormal [Unknown]
  - Tumour marker decreased [Unknown]
  - Nail disorder [Unknown]
  - Back pain [Unknown]
  - Haemoglobin decreased [Unknown]
  - White blood cell count decreased [Unknown]
  - Diarrhoea [Recovering/Resolving]
  - Lacrimation increased [Unknown]
  - Dysgeusia [Unknown]
  - Pruritus [Unknown]

NARRATIVE: CASE EVENT DATE: 20220101
